FAERS Safety Report 5348416-3 (Version None)
Quarter: 2007Q2

REPORT INFORMATION
  Report Type: 
  Country: None (occurrence: None)
  Receive Date: 20070605
  Receipt Date: 20070529
  Transmission Date: 20071010
  Serious: Yes (Other)
  Sender: FDA-Public Use
  Company Number: 2007JP002234

PATIENT
  Age: 75 Year
  Sex: Male

DRUGS (5)
  1. VESICARE [Suspect]
     Indication: HYPERTONIC BLADDER
     Dosage: 5 MG, UID/QD, ORAL
     Route: 048
     Dates: start: 20070305, end: 20070316
  2. TAMSULOSIN HCL [Concomitant]
  3. TAMSULOSIN HCL [Concomitant]
  4. NERSET (CHIMAPHILA UMBELLATA EXTRACT,ISETUM ARVENSE EXTRACT, PULSATILL [Concomitant]
  5. MEDEPOLIN                             (ALPRAZOLAM) [Concomitant]

REACTIONS (2)
  - EYELID OEDEMA [None]
  - FACIAL PALSY [None]
